FAERS Safety Report 18024338 (Version 6)
Quarter: 2020Q4

REPORT INFORMATION
  Report Type: Spontaneous
  Country: JP (occurrence: JP)
  Receive Date: 20200715
  Receipt Date: 20201126
  Transmission Date: 20210113
  Serious: Yes (Death, Hospitalization, Other)
  Sender: FDA-Public Use
  Company Number: JP-009507513-2007JPN000985J

PATIENT
  Age: 76 Year
  Sex: Male
  Weight: 42 kg

DRUGS (10)
  1. ABRAXANE [Suspect]
     Active Substance: PACLITAXEL
     Dosage: 130MG/BODY 3 TIMES EVERY WEEKS
     Route: 041
     Dates: start: 20200518, end: 20200615
  2. CARBOPLATIN. [Suspect]
     Active Substance: CARBOPLATIN
     Indication: LUNG SQUAMOUS CELL CARCINOMA STAGE IV
     Dosage: 260 MILLIGRAM, Q3W
     Route: 041
     Dates: start: 20200413, end: 20200413
  3. AMLODIPINE [Concomitant]
     Active Substance: AMLODIPINE BESYLATE
     Dosage: 5 MILLIGRAM, QD
     Route: 048
  4. CARBOPLATIN. [Suspect]
     Active Substance: CARBOPLATIN
     Dosage: 260 MILLIGRAM, Q3W
     Route: 041
     Dates: start: 20200518, end: 20200615
  5. BIOFERMIN [Concomitant]
     Active Substance: DIETARY SUPPLEMENT\PROBIOTICS
     Dosage: UNK, QD
     Route: 048
  6. KEYTRUDA [Suspect]
     Active Substance: PEMBROLIZUMAB
     Dosage: 200 MILLIGRAM, Q3W
     Route: 041
     Dates: start: 20200518, end: 20200615
  7. KEYTRUDA [Suspect]
     Active Substance: PEMBROLIZUMAB
     Indication: LUNG SQUAMOUS CELL CARCINOMA STAGE IV
     Dosage: 200 MILLIGRAM, Q3W
     Route: 041
     Dates: start: 20200413, end: 20200413
  8. ABRAXANE [Suspect]
     Active Substance: PACLITAXEL
     Indication: LUNG SQUAMOUS CELL CARCINOMA STAGE IV
     Dosage: 130MG/BODY 3 TIMES EVERY WEEKS
     Route: 041
     Dates: start: 20200413, end: 20200413
  9. FAMOTIDINE OD [Concomitant]
     Active Substance: FAMOTIDINE
     Dosage: UNK
     Route: 048
  10. ENSURE [Concomitant]
     Active Substance: AMINO ACIDS\DEXTROSE\ELECTROLYTES NOS\SOYBEAN OIL\VITAMINS
     Dosage: UNK
     Route: 065

REACTIONS (10)
  - Dehydration [Fatal]
  - Off label use [Unknown]
  - Hyperkalaemia [Fatal]
  - Cardio-respiratory arrest [Recovering/Resolving]
  - Fulminant type 1 diabetes mellitus [Fatal]
  - Acute kidney injury [Fatal]
  - Loss of consciousness [Unknown]
  - Constipation [Unknown]
  - Stomatitis [Unknown]
  - Decreased appetite [Unknown]

NARRATIVE: CASE EVENT DATE: 202004
